FAERS Safety Report 4558883-0 (Version None)
Quarter: 2005Q1

REPORT INFORMATION
  Report Type: 
  Country: None (occurrence: None)
  Receive Date: 20050121
  Receipt Date: 20050121
  Transmission Date: 20050727
  Serious: Yes (Hospitalization)
  Sender: FDA-Public Use
  Company Number: None

PATIENT
  Sex: Male
  Weight: 99.8 kg

DRUGS (1)
  1. LINEZOLID [Suspect]
     Indication: WOUND INFECTION
     Dosage: 600MG   Q12H   INTRAVENOU
     Route: 042

REACTIONS (1)
  - RASH [None]
